FAERS Safety Report 9825619 (Version 3)
Quarter: 2014Q1

REPORT INFORMATION
  Report Type: Spontaneous
  Country: JP (occurrence: JP)
  Receive Date: 20140117
  Receipt Date: 20140217
  Transmission Date: 20141002
  Serious: Yes (Life-Threatening, Other)
  Sender: FDA-Public Use
  Company Number: JP-ROCHE-1334033

PATIENT
  Age: 51 Year
  Sex: Female
  Weight: 44 kg

DRUGS (17)
  1. AVASTIN [Suspect]
     Indication: BREAST CANCER METASTATIC
     Dosage: TREATMENT LINE: 9 AND COMPLETED TREATMENT CYCLE NUMBER: 1
     Route: 041
     Dates: start: 20131106, end: 20131127
  2. HERCEPTIN [Suspect]
     Indication: BREAST CANCER METASTATIC
     Route: 041
     Dates: start: 201302, end: 201302
  3. HERCEPTIN [Suspect]
     Indication: BREAST CANCER METASTATIC
     Dosage: 21 TIME IN TOTAL ADMINISTERING
     Route: 041
     Dates: end: 201307
  4. EPIRUBICIN HYDROCHLORIDE [Suspect]
     Indication: BREAST CANCER METASTATIC
     Dosage: DOSAGE IS UNCERTAIN.
     Route: 041
     Dates: start: 201101, end: 201109
  5. EPIRUBICIN HYDROCHLORIDE [Suspect]
     Indication: BREAST CANCER METASTATIC
     Dosage: DOSAGE IS UNCERTAIN.
     Route: 041
     Dates: start: 201307, end: 201310
  6. PACLITAXEL [Concomitant]
     Indication: BREAST CANCER METASTATIC
     Dosage: COMPLETED CYCLE NUMBER: 1
     Route: 041
     Dates: start: 20131106, end: 20131127
  7. ONDANSETRON [Concomitant]
     Indication: PROPHYLAXIS
     Route: 042
     Dates: start: 20131106, end: 20131127
  8. DECADRON [Concomitant]
     Indication: PROPHYLAXIS
     Route: 042
     Dates: start: 20131106, end: 20131127
  9. CHLOR-TRIMETON [Concomitant]
     Indication: PROPHYLAXIS
     Route: 042
     Dates: start: 20131106, end: 20131127
  10. GASTER (JAPAN) [Concomitant]
     Indication: PROPHYLAXIS
     Route: 042
     Dates: start: 20131106, end: 20131127
  11. ZOMETA [Concomitant]
     Indication: BREAST CANCER METASTATIC
     Route: 041
     Dates: start: 201109, end: 201206
  12. ZOMETA [Concomitant]
     Indication: BREAST CANCER METASTATIC
     Route: 065
     Dates: start: 201206, end: 201302
  13. FASLODEX [Concomitant]
     Indication: BREAST CANCER METASTATIC
     Route: 030
     Dates: start: 201206, end: 201302
  14. NAVELBINE [Concomitant]
     Indication: BREAST CANCER METASTATIC
     Route: 042
     Dates: start: 201302, end: 201307
  15. 5-FU [Concomitant]
     Indication: BREAST CANCER METASTATIC
     Route: 041
     Dates: start: 201101, end: 201109
  16. 5-FU [Concomitant]
     Indication: BREAST CANCER METASTATIC
     Route: 041
     Dates: start: 201307, end: 201310
  17. RANMARK [Concomitant]
     Indication: BREAST CANCER METASTATIC
     Route: 058
     Dates: start: 201308, end: 201310

REACTIONS (8)
  - Cardio-respiratory arrest [Recovered/Resolved]
  - Ventricular fibrillation [Recovered/Resolved]
  - Cardiac failure [Unknown]
  - Cardiomyopathy [Unknown]
  - Memory impairment [Unknown]
  - Cardiac failure [Unknown]
  - Hypomagnesaemia [Recovered/Resolved]
  - Hypokalaemia [Recovered/Resolved]
